FAERS Safety Report 4536921-9 (Version None)
Quarter: 2004Q4

REPORT INFORMATION
  Report Type: 
  Country: None (occurrence: None)
  Receive Date: 20041220
  Receipt Date: 20041213
  Transmission Date: 20050328
  Serious: Yes (Other)
  Sender: FDA-Public Use
  Company Number: US-2004-029413

PATIENT
  Age: 40 Year
  Sex: Female

DRUGS (13)
  1. CLIMARA [Suspect]
     Indication: HORMONE REPLACEMENT THERAPY
     Dosage: SEE IMAGE
     Route: 062
     Dates: start: 20031001, end: 20031001
  2. CLIMARA [Suspect]
     Indication: HORMONE REPLACEMENT THERAPY
     Dosage: SEE IMAGE
     Route: 062
     Dates: start: 20031101, end: 20040701
  3. CLIMARA [Suspect]
     Indication: HORMONE REPLACEMENT THERAPY
     Dosage: SEE IMAGE
     Route: 062
     Dates: start: 20040701
  4. ESTROGEN NOS (ESTROGEN NOS) [Suspect]
     Indication: HORMONE REPLACEMENT THERAPY
     Dosage: ORAL
     Route: 048
     Dates: start: 20031001, end: 20031101
  5. CLIMARA [Suspect]
  6. TOPAMAX [Concomitant]
  7. NEURONTIN [Concomitant]
  8. INDOCIN [Concomitant]
  9. DOXYCYCLINE [Concomitant]
  10. LEXAPRO [Concomitant]
  11. PREVACID [Concomitant]
  12. DURAGESIC [Concomitant]
  13. SYNTHROID [Concomitant]

REACTIONS (10)
  - ANKYLOSING SPONDYLITIS [None]
  - CHRONIC FATIGUE SYNDROME [None]
  - CONDITION AGGRAVATED [None]
  - CRYING [None]
  - DEPRESSION [None]
  - FASCIITIS [None]
  - HOT FLUSH [None]
  - INTERVERTEBRAL DISC PROTRUSION [None]
  - PHARMACEUTICAL PRODUCT COMPLAINT [None]
  - TENDONITIS [None]
